FAERS Safety Report 7550117-8 (Version None)
Quarter: 2011Q2

REPORT INFORMATION
  Report Type: 
  Country: None (occurrence: None)
  Receive Date: 20110615
  Receipt Date: 20110607
  Transmission Date: 20111010
  Serious: Yes (Hospitalization)
  Sender: FDA-Public Use
  Company Number: IE-B.I. PHARMACEUTICALS,INC./RIDGEFIELD-2011-UK-00524UK

PATIENT
  Sex: Male

DRUGS (9)
  1. PRADAXA [Suspect]
     Indication: THROMBOSIS PROPHYLAXIS
     Dosage: 220 MG
     Dates: start: 20110512, end: 20110526
  2. FUROSEMIDE [Concomitant]
  3. LOSARTAN POTASSIUM [Concomitant]
  4. ALLOPURINOL [Concomitant]
     Dosage: 30 G
  5. DOXAZOSIN MESYLATE [Concomitant]
  6. FUROSEMIDE [Concomitant]
     Dosage: 40 MG
  7. ASPIRIN [Concomitant]
  8. SOTALOL HCL [Concomitant]
     Dosage: 160 MG
  9. TRAZODONE HCL [Concomitant]
     Dosage: 50 MG

REACTIONS (1)
  - LIVER FUNCTION TEST ABNORMAL [None]
